FAERS Safety Report 16755527 (Version 2)
Quarter: 2019Q4

REPORT INFORMATION
  Report Type: Spontaneous
  Country: MY (occurrence: MY)
  Receive Date: 20190829
  Receipt Date: 20191001
  Transmission Date: 20200122
  Serious: No
  Sender: FDA-Public Use
  Company Number: MY-ALLERGAN-1935336US

PATIENT
  Sex: Male
  Weight: 66 kg

DRUGS (4)
  1. CLOFAZIMINE [Concomitant]
     Active Substance: CLOFAZIMINE
     Dosage: 50 MG, QD
     Route: 048
     Dates: start: 20161006, end: 20161205
  2. CLOFAZIMINE [Concomitant]
     Active Substance: CLOFAZIMINE
     Indication: LEPROSY
     Dosage: 300 MG, Q MONTH
     Route: 048
     Dates: start: 20161006, end: 20161205
  3. NO SUSPECT ALLERGAN PRODUCT [Suspect]
     Active Substance: UNSPECIFIED INGREDIENT
     Indication: LEPROSY
     Dosage: 100 MG, QD
     Route: 048
     Dates: start: 20161006, end: 20161205
  4. RIFAMPICIN [Concomitant]
     Active Substance: RIFAMPIN
     Indication: LEPROSY
     Dosage: 600 MG, Q MONTH
     Route: 048
     Dates: start: 20161006, end: 20161106

REACTIONS (1)
  - No adverse event [Unknown]
